FAERS Safety Report 4683022-5 (Version None)
Quarter: 2005Q2

REPORT INFORMATION
  Report Type: 
  Country: None (occurrence: None)
  Receive Date: 20050602
  Receipt Date: 20050210
  Transmission Date: 20051028
  Serious: No
  Sender: FDA-Public Use
  Company Number: USA050290562

PATIENT
  Age: 40 Year
  Sex: Female
  Weight: 85 kg

DRUGS (2)
  1. CYMBALTA [Suspect]
     Indication: STRESS INCONTINENCE
     Dosage: 60 MG
     Dates: start: 20041001
  2. FLUOXETINE [Concomitant]

REACTIONS (7)
  - DRY MOUTH [None]
  - FEELING ABNORMAL [None]
  - FEELING HOT [None]
  - FLUSHING [None]
  - HEADACHE [None]
  - NAUSEA [None]
  - STUPOR [None]
